FAERS Safety Report 25838141 (Version 2)
Quarter: 2025Q4

REPORT INFORMATION
  Report Type: Spontaneous
  Country: US (occurrence: US)
  Receive Date: 20250923
  Receipt Date: 20251113
  Transmission Date: 20260118
  Serious: No
  Sender: ANI
  Company Number: US-ANIPHARMA-2025-US-030531

PATIENT
  Sex: Female

DRUGS (13)
  1. VITAMINS [Concomitant]
     Active Substance: VITAMINS
  2. XYZAL ALLERGY 24HR [Concomitant]
     Active Substance: LEVOCETIRIZINE DIHYDROCHLORIDE
  3. WEGOVY [Concomitant]
     Active Substance: SEMAGLUTIDE
  4. NABUMETONE [Concomitant]
     Active Substance: NABUMETONE
  5. CORTICOTROPIN [Suspect]
     Active Substance: CORTICOTROPIN
     Route: 058
  6. GABAPENTIN [Concomitant]
     Active Substance: GABAPENTIN
  7. ZOFRAN [Concomitant]
     Active Substance: ONDANSETRON HYDROCHLORIDE
  8. SEROQUEL [Concomitant]
     Active Substance: QUETIAPINE FUMARATE
  9. LISINOPRIL [Concomitant]
     Active Substance: LISINOPRIL
  10. TOPIRAMATE [Concomitant]
     Active Substance: TOPIRAMATE
  11. OMEPRAZOLE [Concomitant]
     Active Substance: OMEPRAZOLE
  12. FLEXERIL [Concomitant]
     Active Substance: CYCLOBENZAPRINE HYDROCHLORIDE
  13. CORTICOTROPIN [Suspect]
     Active Substance: CORTICOTROPIN
     Indication: Psoriatic arthropathy
     Dosage: 80 UNITS WEEKLY TWICE
     Route: 058

REACTIONS (1)
  - Drug ineffective [Not Recovered/Not Resolved]
